FAERS Safety Report 8680447 (Version 3)
Quarter: 2012Q4

REPORT INFORMATION
  Report Type: 
  Country: BR (occurrence: BR)
  Receive Date: 20120724
  Receipt Date: 20121126
  Transmission Date: 20130627
  Serious: Yes (Other)
  Sender: FDA-Public Use
  Company Number: BR-ASTRAZENECA-2012SE49896

PATIENT
  Age: 68 Year
  Sex: Female
  Weight: 65 kg

DRUGS (12)
  1. NEXIUM [Suspect]
     Indication: GASTRITIS PROPHYLAXIS
     Route: 048
     Dates: start: 2008, end: 201206
  2. NEXIUM [Suspect]
     Indication: GASTRITIS EROSIVE
     Route: 048
     Dates: start: 2008, end: 201206
  3. NEXIUM [Suspect]
     Indication: OESOPHAGITIS
     Route: 048
     Dates: start: 2008, end: 201206
  4. NEXIUM [Suspect]
     Indication: GASTRITIS PROPHYLAXIS
     Route: 048
  5. NEXIUM [Suspect]
     Indication: GASTRITIS EROSIVE
     Route: 048
  6. NEXIUM [Suspect]
     Indication: OESOPHAGITIS
     Route: 048
  7. NEXIUM [Suspect]
     Indication: GASTRITIS PROPHYLAXIS
     Route: 048
     Dates: start: 201206
  8. NEXIUM [Suspect]
     Indication: GASTRITIS EROSIVE
     Route: 048
     Dates: start: 201206
  9. NEXIUM [Suspect]
     Indication: OESOPHAGITIS
     Route: 048
     Dates: start: 201206
  10. LONIUM [Concomitant]
     Indication: GASTROINTESTINAL DISORDER
  11. ICTUS [Concomitant]
  12. TRANQUINAL [Concomitant]
     Route: 048

REACTIONS (8)
  - Lung neoplasm malignant [Not Recovered/Not Resolved]
  - Lung disorder [Unknown]
  - Breast cancer metastatic [Unknown]
  - Gastritis [Not Recovered/Not Resolved]
  - Oesophagitis [Not Recovered/Not Resolved]
  - Oedema peripheral [Recovered/Resolved]
  - Leukopenia [Unknown]
  - Drug ineffective [Unknown]
